FAERS Safety Report 8503917-1 (Version None)
Quarter: 2012Q3

REPORT INFORMATION
  Report Type: 
  Country: None (occurrence: None)
  Receive Date: 20120711
  Receipt Date: 20120619
  Transmission Date: 20120928
  Serious: Yes (Hospitalization, Congenital Anomaly)
  Sender: FDA-Public Use
  Company Number: TN-009507513-1207TUN000359

PATIENT

DRUGS (1)
  1. CELESTONE [Suspect]
     Indication: MATERNAL THERAPY TO ENHANCE FOETAL LUNG MATURITY
     Dosage: 12 MG, QD
     Route: 064

REACTIONS (2)
  - HYPERTROPHIC CARDIOMYOPATHY [None]
  - FOETAL EXPOSURE DURING PREGNANCY [None]
